FAERS Safety Report 5152444-0 (Version None)
Quarter: 2006Q4

REPORT INFORMATION
  Report Type: 
  Country: None (occurrence: None)
  Receive Date: 20061109
  Receipt Date: 20061030
  Transmission Date: 20070319
  Serious: Yes (Hospitalization)
  Sender: FDA-Public Use
  Company Number: 2006-02401

PATIENT
  Age: 59 Year
  Sex: Female
  Weight: 94 kg

DRUGS (13)
  1. VELCADE [Suspect]
     Indication: MULTIPLE MYELOMA
     Dosage: 1.30 MG/M2, INTRAVENOUS
     Route: 042
     Dates: start: 20060612, end: 20060905
  2. MELPHALAN                   (MELPHALAN) VIAL [Suspect]
     Indication: MULTIPLE MYELOMA
     Dosage: 15.00 MG, INTRAVENOUS
     Route: 042
     Dates: start: 20060613, end: 20060905
  3. LANSOPRAZOLE [Concomitant]
  4. FENANYL                (FENTANYL) PATCH [Concomitant]
  5. OXINORM (ORGOTEIN) [Concomitant]
  6. CYANOCOBALAMIN [Concomitant]
  7. ZOMETA [Concomitant]
  8. TURMERIC (TURMERIC) [Concomitant]
  9. ONDANSETRON              (ONSANSETRON) [Concomitant]
  10. CYCLIZINE        (CYCLIZINE) [Concomitant]
  11. METOCLOPRAMIDE [Concomitant]
  12. TIMENTIN         (TICARCILLIN DISODIUM, CLAVULANIC ACID) [Concomitant]
  13. GENTAMICIN [Concomitant]

REACTIONS (5)
  - ABDOMINAL PAIN [None]
  - NAUSEA [None]
  - PAIN [None]
  - PYREXIA [None]
  - VOMITING [None]
